FAERS Safety Report 4480519-8 (Version None)
Quarter: 2004Q4

REPORT INFORMATION
  Report Type: 
  Country: None (occurrence: None)
  Receive Date: 20041019
  Receipt Date: 20041004
  Transmission Date: 20050328
  Serious: Yes (Hospitalization)
  Sender: FDA-Public Use
  Company Number: 200412559GDS

PATIENT
  Sex: Female

DRUGS (2)
  1. GLUCOBAY [Suspect]
     Indication: HYPERINSULINAEMIA
     Dosage: ORAL
     Route: 048
  2. GLUCOBAY [Suspect]
     Indication: HYPOGLYCAEMIA
     Dosage: ORAL
     Route: 048

REACTIONS (5)
  - HYPERHIDROSIS [None]
  - HYPOGLYCAEMIA [None]
  - LOSS OF CONSCIOUSNESS [None]
  - MALAISE [None]
  - TRANSIENT ISCHAEMIC ATTACK [None]
